FAERS Safety Report 4760047-2 (Version None)
Quarter: 2005Q3

REPORT INFORMATION
  Report Type: 
  Country: None (occurrence: None)
  Receive Date: 20050902
  Receipt Date: 20050825
  Transmission Date: 20060218
  Serious: Yes (Other)
  Sender: FDA-Public Use
  Company Number: US-JNJFOC-20050806071

PATIENT
  Sex: Female
  Weight: 90.72 kg

DRUGS (4)
  1. REMICADE [Suspect]
     Route: 042
  2. REMICADE [Suspect]
     Indication: RHEUMATOID ARTHRITIS
     Route: 042
  3. VERELAN [Concomitant]
  4. XANAX [Concomitant]

REACTIONS (2)
  - PAPILLOEDEMA [None]
  - RETINAL HAEMORRHAGE [None]
